FAERS Safety Report 6004804-3 (Version None)
Quarter: 2008Q4

REPORT INFORMATION
  Report Type: 
  Country: None (occurrence: None)
  Receive Date: 20081216
  Receipt Date: 20081208
  Transmission Date: 20090506
  Serious: Yes (Hospitalization, Other)
  Sender: FDA-Public Use
  Company Number: DE-ABBOTT-08P-062-0437520-00

PATIENT
  Sex: Male
  Weight: 70 kg

DRUGS (5)
  1. HUMIRA [Suspect]
     Indication: ANKYLOSING SPONDYLITIS
     Route: 058
     Dates: start: 20071107, end: 20081108
  2. ETORICOXIB [Concomitant]
     Indication: ANKYLOSING SPONDYLITIS
     Dates: start: 20070701
  3. SULFASALAZINE [Concomitant]
     Indication: ANKYLOSING SPONDYLITIS
  4. BISELECT [Concomitant]
     Indication: HYPERTENSION
     Route: 048
  5. BIMATOPROST [Concomitant]
     Indication: GLAUCOMA
     Route: 065

REACTIONS (2)
  - METASTASES TO BONE [None]
  - TESTIS CANCER [None]
